FAERS Safety Report 22135289 (Version 1)
Quarter: 2023Q1

REPORT INFORMATION
  Report Type: Spontaneous
  Country: US (occurrence: None)
  Receive Date: 20230323
  Receipt Date: 20230323
  Transmission Date: 20230417
  Serious: No
  Sender: FDA-Public Use
  Company Number: None

PATIENT

DRUGS (2)
  1. INSULIN NOS [Suspect]
     Active Substance: INSULIN NOS
  2. INSULIN NOS [Suspect]
     Active Substance: INSULIN NOS

REACTIONS (7)
  - Hypoglycaemia [None]
  - Incorrect dose administered [None]
  - Wrong technique in product usage process [None]
  - Wrong technique in product usage process [None]
  - Product preparation error [None]
  - Device use confusion [None]
  - Product dose confusion [None]
